FAERS Safety Report 5214201-6 (Version None)
Quarter: 2007Q1

REPORT INFORMATION
  Report Type: 
  Country: None (occurrence: None)
  Receive Date: 20070116
  Receipt Date: 20070105
  Transmission Date: 20070707
  Serious: Yes (Hospitalization)
  Sender: FDA-Public Use
  Company Number: 2006BI017526

PATIENT
  Age: 44 Year
  Sex: Male
  Weight: 56.6996 kg

DRUGS (7)
  1. AVONEX [Suspect]
     Indication: MULTIPLE SCLEROSIS
     Dosage: 30 UG; QW; IM
     Route: 030
     Dates: start: 19980101, end: 20030101
  2. AVONEX [Suspect]
     Indication: MULTIPLE SCLEROSIS
     Dosage: 30 UG; QW; IM
     Route: 030
     Dates: start: 20030101
  3. BACLOFEN [Concomitant]
  4. TIZANIDINE HCL [Concomitant]
  5. OS CAL [Concomitant]
  6. MULTI-VITAMIN [Concomitant]
  7. AZO [Concomitant]

REACTIONS (5)
  - BACTERIA BLOOD IDENTIFIED [None]
  - CYSTITIS [None]
  - NEPHROLITHIASIS [None]
  - NEUROGENIC BLADDER [None]
  - URINARY TRACT INFECTION [None]
